FAERS Safety Report 23195085 (Version 5)
Quarter: 2024Q4

REPORT INFORMATION
  Report Type: Report from Study
  Country: BE (occurrence: BE)
  Receive Date: 20231117
  Receipt Date: 20241114
  Transmission Date: 20250114
  Serious: Yes (Hospitalization)
  Sender: JOHNSON AND JOHNSON
  Company Number: BE-JNJFOC-20231131213

PATIENT
  Age: 56 Year
  Sex: Female
  Weight: 103 kg

DRUGS (2)
  1. SPRAVATO [Suspect]
     Active Substance: ESKETAMINE
     Indication: Major depression
     Dosage: 56 MG (2 DEVICES)?12-MAY-2022, 17-MAY-2022, 19-MAY-2022, 24-MAY-2022.
     Dates: start: 20220510, end: 20220524
  2. SPRAVATO [Suspect]
     Active Substance: ESKETAMINE
     Dosage: 84 MG (3 DEVICES) ?31-MAY-2022, 02-JUN-2022, 07-JUN-2022, 10-JUN-2022, 14-JUN-2022, 16-JUN-2022, 21-
     Dates: start: 20220527, end: 20230926

REACTIONS (4)
  - Alcohol abuse [Recovered/Resolved]
  - Depression [Not Recovered/Not Resolved]
  - Anxiety [Recovering/Resolving]
  - Insomnia [Recovering/Resolving]

NARRATIVE: CASE EVENT DATE: 20230926
